FAERS Safety Report 8920394 (Version 3)
Quarter: 2014Q2

REPORT INFORMATION
  Report Type: Spontaneous
  Country: US (occurrence: US)
  Receive Date: 20121121
  Receipt Date: 20131024
  Transmission Date: 20141212
  Serious: No
  Sender: FDA-Public Use
  Company Number: US-PFIZER INC-2012291406

PATIENT
  Age: 50 Year
  Sex: Female
  Weight: 119 kg

DRUGS (6)
  1. GABAPENTIN [Suspect]
     Indication: FIBROMYALGIA
     Dosage: 300 MG, 3X/DAY
  2. GABAPENTIN [Suspect]
     Dosage: UP TO 800MG,3X/DAY
  3. GABAPENTIN [Suspect]
     Dosage: 1200 MG, 3X/DAY
  4. ADVIL PM [Suspect]
     Indication: INSOMNIA
     Dosage: 3 DF, DAILY (AT NIGHT)
     Route: 048
  5. ALPRAZOLAM [Concomitant]
     Indication: ANXIETY
     Dosage: 2 MG, 2X/DAY
  6. TYLENOL [Concomitant]
     Indication: ARTHRITIS
     Dosage: 2 DF, 3X/DAY
     Route: 048

REACTIONS (3)
  - Drug ineffective [Unknown]
  - Insomnia [Unknown]
  - Intentional product misuse [Unknown]
